FAERS Safety Report 7998603 (Version 2)
Quarter: 2013Q3

REPORT INFORMATION
  Report Type: Report from Study
  Country: US (occurrence: US)
  Receive Date: 20110620
  Receipt Date: 20130731
  Transmission Date: 20140515
  Serious: Yes (Hospitalization)
  Sender: FDA-Public Use
  Company Number: US-UCBSA-024907

PATIENT
  Age: 34 Year
  Sex: Female
  Weight: 90.7 kg

DRUGS (21)
  1. CIMZIA [Suspect]
     Indication: CROHN^S DISEASE
     Route: 058
     Dates: start: 20100609, end: 20100623
  2. CIMZIA [Suspect]
     Indication: CROHN^S DISEASE
     Route: 058
     Dates: start: 20100730
  3. KEFLEX [Suspect]
     Indication: URINARY TRACT INFECTION
  4. PREDNISONE [Concomitant]
     Indication: CROHN^S DISEASE
     Dates: start: 200902, end: 200910
  5. PREDNISONE [Concomitant]
     Indication: CROHN^S DISEASE
     Dates: start: 20100104, end: 201110
  6. METHOTREXATE [Concomitant]
     Indication: CROHN^S DISEASE
     Dates: start: 20100224, end: 201011
  7. DIPHENOXYLATE WITH ATROPINE [Concomitant]
     Indication: CROHN^S DISEASE
  8. MULTIVITAMIN [Concomitant]
     Route: 048
  9. VITAMIN B12 [Concomitant]
     Dosage: MONTHLY
  10. PROMETHAZINE HCL [Concomitant]
     Indication: VOMITING
     Dosage: Q6H
     Route: 048
  11. PROMETHAZINE HCL [Concomitant]
     Indication: NAUSEA
     Dosage: Q6H
     Route: 048
  12. EFFEXOR [Concomitant]
     Dosage: DAILY
     Route: 048
  13. BONIVA [Concomitant]
     Dosage: MONTHLY
     Route: 048
  14. CALCIUM 1200MG PLUS VITAMIN [Concomitant]
  15. FOLIC ACID [Concomitant]
     Dosage: DAILY
     Route: 048
  16. EFFEXOR XR [Concomitant]
     Dosage: DAILY
     Route: 048
  17. WELCHOL [Concomitant]
     Dosage: DOSE : 625 MG
     Route: 048
  18. PRIVINIL [Concomitant]
     Dosage: DAILY DOSE : 20 MG
     Route: 048
  19. NEXIUM [Concomitant]
     Dosage: DAILY DOSE : 40 MG
     Route: 048
  20. TRAMADOL [Concomitant]
     Dosage: DOSE: 50 MG ,1-2 QID AS REQUIRED
     Route: 048
  21. ZOFRAN [Concomitant]
     Indication: NAUSEA
     Dosage: DOSE : 4 MG AS REQUIRED EVERY 6 HOURS
     Route: 048

REACTIONS (1)
  - Clostridium difficile colitis [Recovering/Resolving]
